FAERS Safety Report 6039898-2 (Version None)
Quarter: 2009Q1

REPORT INFORMATION
  Report Type: 
  Country: None (occurrence: None)
  Receive Date: 20090116
  Receipt Date: 20090108
  Transmission Date: 20090719
  Serious: Yes (Hospitalization)
  Sender: FDA-Public Use
  Company Number: FR-BAYER-FR-2007-027901

PATIENT
  Age: 54 Year
  Sex: Male

DRUGS (12)
  1. CAMPATH [Suspect]
     Indication: MYCOSIS FUNGOIDES
     Dosage: UNIT DOSE: 30 MG
     Route: 042
     Dates: start: 20070720, end: 20070720
  2. CAMPATH [Suspect]
     Dosage: UNIT DOSE: 30 MG
     Route: 042
     Dates: start: 20070723, end: 20070723
  3. CAMPATH [Suspect]
     Dosage: UNIT DOSE: 3 MG
     Route: 058
     Dates: start: 20070716, end: 20070716
  4. CAMPATH [Suspect]
     Dosage: UNIT DOSE: 10 MG
     Route: 058
     Dates: start: 20070718, end: 20070718
  5. SOLUPRED [Concomitant]
     Dosage: UNIT DOSE: 20 MG
     Dates: start: 20070716, end: 20070716
  6. SOLUPRED [Concomitant]
     Dosage: UNIT DOSE: 20 MG
     Dates: start: 20070718, end: 20070718
  7. SOLUPRED [Concomitant]
     Dosage: UNIT DOSE: 20 MG
     Dates: start: 20070720, end: 20070720
  8. SOLUPRED [Concomitant]
     Dosage: UNIT DOSE: 20 MG
     Dates: start: 20070723, end: 20070723
  9. ATARAX [Concomitant]
     Dosage: UNIT DOSE: 25 MG
     Dates: start: 20070716, end: 20070716
  10. ATARAX [Concomitant]
     Dosage: UNIT DOSE: 25 MG
     Dates: start: 20070718, end: 20070718
  11. ATARAX [Concomitant]
     Dosage: UNIT DOSE: 25 MG
     Dates: start: 20070720, end: 20070720
  12. ATARAX [Concomitant]
     Dosage: UNIT DOSE: 25 MG
     Dates: start: 20070723, end: 20070723

REACTIONS (7)
  - CHILLS [None]
  - CHOLESTASIS [None]
  - COUGH [None]
  - CYTOLYTIC HEPATITIS [None]
  - HYPOTENSION [None]
  - LYMPHOPENIA [None]
  - PYREXIA [None]
